FAERS Safety Report 17217487 (Version 1)
Quarter: 2019Q4

REPORT INFORMATION
  Report Type: Spontaneous
  Country: FR (occurrence: FR)
  Receive Date: 20191231
  Receipt Date: 20191231
  Transmission Date: 20200122
  Serious: Yes (Life-Threatening)
  Sender: FDA-Public Use
  Company Number: FR-TEVA-2019-FR-1159333

PATIENT
  Age: 62 Year
  Sex: Male
  Weight: 110 kg

DRUGS (12)
  1. LOXAPAC 50 MG/2 ML, SOLUTION INJECTABLE EN AMPOULE (IM) [Suspect]
     Active Substance: LOXAPINE
     Indication: PSYCHOTIC DISORDER
     Dosage: 1 DOSAGE FORM PER DAY
     Route: 030
     Dates: start: 20190731, end: 20191105
  2. LEPTICUR 10 MG, COMPRIME [Suspect]
     Active Substance: TROPATEPINE HYDROCHLORIDE
     Indication: PARKINSONISM
     Dosage: 1 DOSAGE FORM PER DAY
     Route: 048
     Dates: start: 20190801, end: 20191105
  3. MIANSERINE (CHLORHYDRATE DE) [Suspect]
     Active Substance: MIANSERIN HYDROCHLORIDE
     Indication: DEPRESSION
     Dosage: 1 DOSAGE FORM PER DAY
     Route: 048
     Dates: start: 20190909, end: 20191105
  4. NORMACOL [Concomitant]
     Active Substance: HERBALS\KARAYA GUM
  5. ATORVASTATINE [Concomitant]
     Active Substance: ATORVASTATIN
  6. ARIPIPRAZOLE EG 15 MG, COMPRIME [Suspect]
     Active Substance: ARIPIPRAZOLE
     Indication: PSYCHOTIC DISORDER
     Dosage: 1 DOSAGE FORM PER DAY
     Route: 048
     Dates: start: 20190909, end: 20191105
  7. CELIPROLOL [Concomitant]
     Active Substance: CELIPROLOL
  8. CLOZAPINE. [Suspect]
     Active Substance: CLOZAPINE
     Indication: PSYCHOTIC DISORDER
     Dosage: 15MG PER DAY
     Route: 048
     Dates: start: 20191024, end: 20191105
  9. QUETIAPINE MYLAN PHARMA LP 50 MG, COMPRIME A LIBERATION PROLONGEE [Suspect]
     Active Substance: QUETIAPINE FUMARATE
     Indication: PSYCHOTIC DISORDER
     Dosage: 1 DOSAGE FORM PER DAY
     Route: 048
     Dates: start: 20190909, end: 20191105
  10. PERINDOPRIL [Concomitant]
     Active Substance: PERINDOPRIL
  11. ALPRAZOLAM ARROW 0,25 MG, COMPRIME SECABLE [Suspect]
     Active Substance: ALPRAZOLAM
     Indication: ANXIETY
     Route: 048
     Dates: start: 20190801, end: 20191105
  12. KARDEGIC [Concomitant]
     Active Substance: ASPIRIN DL-LYSINE

REACTIONS (5)
  - Acute kidney injury [Recovered/Resolved]
  - Septic shock [Recovered/Resolved]
  - Faecaloma [Recovered/Resolved]
  - Hypothermia [Recovered/Resolved]
  - Subileus [Recovered/Resolved]

NARRATIVE: CASE EVENT DATE: 20191102
